FAERS Safety Report 20477465 (Version 1)
Quarter: 2022Q1

REPORT INFORMATION
  Report Type: Report from Study
  Country: JP (occurrence: JP)
  Receive Date: 20220216
  Receipt Date: 20220216
  Transmission Date: 20220423
  Serious: Yes (Hospitalization, Other)
  Sender: FDA-Public Use
  Company Number: JP-SAKK-2022SA047553AA

PATIENT
  Age: 71 Year
  Sex: Male
  Weight: 69 kg

DRUGS (11)
  1. ISATUXIMAB [Suspect]
     Active Substance: ISATUXIMAB
     Indication: Plasma cell myeloma
     Dosage: 10 MG/KG, QW
     Route: 041
     Dates: start: 20201005, end: 20201026
  2. ISATUXIMAB [Suspect]
     Active Substance: ISATUXIMAB
     Dosage: 10 MG/KG, QOW
     Route: 041
     Dates: start: 20201119, end: 20201203
  3. DEXAMETHASONE [Suspect]
     Active Substance: DEXAMETHASONE
     Indication: Plasma cell myeloma
     Dosage: 20 MG, QW
     Route: 065
     Dates: start: 20201005, end: 20201026
  4. DEXAMETHASONE [Suspect]
     Active Substance: DEXAMETHASONE
     Dosage: 20 MG, QOW
     Route: 065
     Dates: start: 20201119, end: 20201203
  5. POMALIDOMIDE [Suspect]
     Active Substance: POMALIDOMIDE
     Indication: Plasma cell myeloma
     Dosage: DAILY DOSE: 4 MG
     Route: 065
     Dates: start: 20201005, end: 20201025
  6. POMALIDOMIDE [Suspect]
     Active Substance: POMALIDOMIDE
     Dosage: DAILY DOSE: 4 MG
     Route: 065
     Dates: start: 20201119, end: 20201202
  7. KYPROLIS [Suspect]
     Active Substance: CARFILZOMIB
     Indication: Plasma cell myeloma
     Dosage: UNK
     Route: 065
     Dates: start: 201909, end: 201910
  8. ACETAMINOPHEN [Concomitant]
     Active Substance: ACETAMINOPHEN
     Indication: Prophylaxis
     Dosage: DAILY DOSE: 500 MG
     Route: 065
     Dates: start: 20201005, end: 20201005
  9. ACETAMINOPHEN [Concomitant]
     Active Substance: ACETAMINOPHEN
     Dosage: DAILY DOSE: 500 MG
     Route: 065
     Dates: start: 20201119, end: 20201119
  10. RESTAMIN [DIPHENHYDRAMINE HYDROCHLORIDE] [Concomitant]
     Indication: Prophylaxis
     Dosage: DAILY DOSE: 30 MG
     Route: 065
     Dates: start: 20201005, end: 20201005
  11. RESTAMIN [DIPHENHYDRAMINE HYDROCHLORIDE] [Concomitant]
     Dosage: DAILY DOSE: 30 MG
     Route: 065
     Dates: start: 20201119, end: 20201119

REACTIONS (6)
  - Chondrocalcinosis pyrophosphate [Recovered/Resolved]
  - Cardiac failure acute [Not Recovered/Not Resolved]
  - Pneumonia [Recovered/Resolved]
  - Staphylococcal sepsis [Recovered/Resolved]
  - Neutrophil count decreased [Recovered/Resolved]
  - Platelet count decreased [Recovered/Resolved]

NARRATIVE: CASE EVENT DATE: 20201017
